FAERS Safety Report 26083211 (Version 2)
Quarter: 2025Q4

REPORT INFORMATION
  Report Type: Spontaneous
  Country: US (occurrence: US)
  Receive Date: 20251124
  Receipt Date: 20251208
  Transmission Date: 20260117
  Serious: No
  Sender: ALEXION PHARMACEUTICALS
  Company Number: US-AstraZeneca-CH-01000144A

PATIENT
  Age: 70 Year
  Sex: Female

DRUGS (1)
  1. ULTOMIRIS [Suspect]
     Active Substance: RAVULIZUMAB-CWVZ
     Indication: Neuromyelitis optica spectrum disorder
     Dosage: UNK UNK, Q8W
     Dates: start: 202010

REACTIONS (5)
  - Nasopharyngitis [Recovering/Resolving]
  - Sneezing [Not Recovered/Not Resolved]
  - Cough [Not Recovered/Not Resolved]
  - Oropharyngeal pain [Unknown]
  - Dysphonia [Unknown]

NARRATIVE: CASE EVENT DATE: 20251116
